FAERS Safety Report 23989917 (Version 3)
Quarter: 2024Q3

REPORT INFORMATION
  Report Type: Spontaneous
  Country: US (occurrence: US)
  Receive Date: 20240619
  Receipt Date: 20240812
  Transmission Date: 20241017
  Serious: Yes (Hospitalization, Disabling, Other)
  Sender: PFIZER
  Company Number: US-PFIZER INC-202400194457

PATIENT
  Age: 62 Year
  Sex: Female

DRUGS (4)
  1. ADCETRIS [Suspect]
     Active Substance: BRENTUXIMAB VEDOTIN
     Indication: Peripheral T-cell lymphoma unspecified
     Dosage: 76 MG, EVERY 3 WEEKS
  2. VINCRISTINE [Concomitant]
     Active Substance: VINCRISTINE
     Dosage: UNK
  3. CYTOXAN [Concomitant]
     Active Substance: CYCLOPHOSPHAMIDE
     Dosage: UNK
  4. DOXORUBICIN [Concomitant]
     Active Substance: DOXORUBICIN
     Dosage: UNK

REACTIONS (4)
  - Speech disorder [Recovering/Resolving]
  - Feeling abnormal [Unknown]
  - Fatigue [Unknown]
  - Malaise [Unknown]
